FAERS Safety Report 5107222-5 (Version None)
Quarter: 2006Q3

REPORT INFORMATION
  Report Type: 
  Country: None (occurrence: None)
  Receive Date: 20060731
  Receipt Date: 20060511
  Transmission Date: 20061208
  Serious: No
  Sender: FDA-Public Use
  Company Number: 2006PV013620

PATIENT
  Age: 53 Year
  Sex: Male
  Weight: 106.1417 kg

DRUGS (11)
  1. BYETTA [Suspect]
     Indication: DIABETES MELLITUS NON-INSULIN-DEPENDENT
     Dosage: SEE IMAGE
     Route: 058
     Dates: start: 20050829, end: 20051001
  2. BYETTA [Suspect]
     Indication: DIABETES MELLITUS NON-INSULIN-DEPENDENT
     Dosage: SEE IMAGE
     Route: 058
     Dates: start: 20051001, end: 20060309
  3. AVANDIA [Concomitant]
  4. METFORMIN HCL [Concomitant]
  5. INSULIN 75/25 [Concomitant]
  6. ASPIRIN [Concomitant]
  7. ALTACE [Concomitant]
  8. LIPITOR [Concomitant]
  9. TRAZODONE HCL [Concomitant]
  10. ZYRTEC [Concomitant]
  11. VIAGRA [Concomitant]

REACTIONS (11)
  - ABDOMINAL WALL ABSCESS [None]
  - ANXIETY [None]
  - DYSARTHRIA [None]
  - DYSPHAGIA [None]
  - DYSPHASIA [None]
  - FALL [None]
  - MUSCLE TWITCHING [None]
  - STRESS [None]
  - UPPER LIMB FRACTURE [None]
  - VITAMIN B12 DECREASED [None]
  - WEIGHT DECREASED [None]
